FAERS Safety Report 22101070 (Version 1)
Quarter: 2023Q1

REPORT INFORMATION
  Report Type: Other
  Country: US (occurrence: None)
  Receive Date: 20230316
  Receipt Date: 20230316
  Transmission Date: 20230418
  Serious: Yes (Hospitalization)
  Sender: FDA-Public Use
  Company Number: US-ROCHE-3274539

PATIENT
  Age: 10 Year
  Sex: Male
  Weight: 42.4 kg

DRUGS (8)
  1. EVRYSDI [Suspect]
     Active Substance: RISDIPLAM
     Indication: Spinal muscular atrophy
     Route: 048
     Dates: start: 20220916
  2. CETIRIZINE [Concomitant]
     Active Substance: CETIRIZINE HYDROCHLORIDE
     Dosage: 10 MG CHEWABLE TABLET DAILY
  3. LACTULOSE [Concomitant]
     Active Substance: LACTULOSE
     Dosage: 20 GM/30 ML SOLUTION , TAKE 20 G BY MOUTH DAILY
  4. LORATADINE [Concomitant]
     Active Substance: LORATADINE
     Dosage: 10 MG TABLET , TAKE 10 MG BY MOUTH DAILY
  5. SODIUM PHOSPHATE [Concomitant]
     Active Substance: SODIUM PHOSPHATE
     Dosage: 3.5-9.5 GM/59 ML ENEMA
  6. SODIUM [Concomitant]
     Active Substance: SODIUM
  7. POTASSIUM [Concomitant]
     Active Substance: POTASSIUM
  8. CHLORIDE ION [Concomitant]
     Active Substance: CHLORIDE ION

REACTIONS (5)
  - Urinary tract infection [Recovered/Resolved]
  - Nephrolithiasis [Not Recovered/Not Resolved]
  - Sleep disorder [Unknown]
  - Dysphagia [Unknown]
  - Wheezing [Unknown]

NARRATIVE: CASE EVENT DATE: 20230223
